FAERS Safety Report 8198611-3 (Version None)
Quarter: 2012Q1

REPORT INFORMATION
  Report Type: 
  Country: None (occurrence: None)
  Receive Date: 20120309
  Receipt Date: 20120111
  Transmission Date: 20120608
  Serious: No
  Sender: FDA-Public Use
  Company Number: US-AMGEN-USASP2012002020

PATIENT
  Age: 67 Year
  Sex: Female

DRUGS (7)
  1. MICARDIS [Concomitant]
     Dosage: UNK
  2. VITAMINS                           /00067501/ [Concomitant]
     Dosage: UNK
  3. CRESTOR [Concomitant]
     Dosage: UNK
  4. ASPIRIN [Concomitant]
  5. BETALOL                            /00030002/ [Concomitant]
     Dosage: UNK
  6. CALCIUM WITH VITAMIN D             /00944201/ [Concomitant]
     Dosage: UNK
  7. PROLIA [Suspect]
     Indication: OSTEOPOROSIS POSTMENOPAUSAL
     Dosage: 60 MG, Q6MO
     Route: 058
     Dates: start: 20111101

REACTIONS (5)
  - BUNION [None]
  - MUSCLE SPASMS [None]
  - BACK PAIN [None]
  - ARTHRALGIA [None]
  - PAIN IN EXTREMITY [None]
